FAERS Safety Report 24642663 (Version 1)
Quarter: 2024Q4

REPORT INFORMATION
  Report Type: Spontaneous
  Country: US (occurrence: None)
  Receive Date: 20241120
  Receipt Date: 20241120
  Transmission Date: 20250115
  Serious: No
  Sender: Public
  Company Number: None

PATIENT
  Age: 80 Year
  Sex: Male
  Weight: 107.1 kg

DRUGS (1)
  1. DEFINITY [Suspect]
     Active Substance: PERFLUTREN
     Dosage: OTHER FREQUENCY : ONCE;?
     Route: 042

REACTIONS (2)
  - Pain in extremity [None]
  - Procedural pain [None]

NARRATIVE: CASE EVENT DATE: 20241119
